FAERS Safety Report 21087982 (Version 1)
Quarter: 2022Q3

REPORT INFORMATION
  Report Type: Spontaneous
  Country: US (occurrence: None)
  Receive Date: 20220714
  Receipt Date: 20220714
  Transmission Date: 20221026
  Serious: Yes (Other)
  Sender: FDA-Public Use
  Company Number: None

PATIENT
  Age: 65 Year
  Sex: Female

DRUGS (13)
  1. PRALUENT [Suspect]
     Active Substance: ALIROCUMAB
     Dosage: FREQUENCY : TWICE A WEEK;?
     Route: 058
  2. ASPIRIN [Concomitant]
     Active Substance: ASPIRIN
  3. BACLOFEN [Concomitant]
     Active Substance: BACLOFEN
  4. CLONAZEPAM [Concomitant]
     Active Substance: CLONAZEPAM
  5. LORATADINE [Concomitant]
     Active Substance: LORATADINE
  6. LOSARTAN [Concomitant]
     Active Substance: LOSARTAN
  7. LYRICA [Concomitant]
     Active Substance: PREGABALIN
  8. LYRICA [Concomitant]
  9. NITROSTAT [Concomitant]
  10. OMEPRAZOLE [Concomitant]
  11. RESTASIS [Concomitant]
     Active Substance: CYCLOSPORINE
  12. TRINTELLIX [Concomitant]
  13. VITAMIN D [Concomitant]
     Active Substance: VITAMIN D NOS

REACTIONS (2)
  - Adverse event [None]
  - Inappropriate schedule of product administration [None]

NARRATIVE: CASE EVENT DATE: 20220706
